FAERS Safety Report 23925706 (Version 2)
Quarter: 2024Q2

REPORT INFORMATION
  Report Type: Spontaneous
  Country: AU (occurrence: AU)
  Receive Date: 20240531
  Receipt Date: 20240610
  Transmission Date: 20240716
  Serious: Yes (Hospitalization)
  Sender: FDA-Public Use
  Company Number: AU-VANTIVE-2024VAN017238

PATIENT
  Sex: Male

DRUGS (1)
  1. EXTRANEAL [Suspect]
     Active Substance: CALCIUM CHLORIDE\ICODEXTRIN\MAGNESIUM CHLORIDE\SODIUM CHLORIDE\SODIUM LACTATE
     Indication: Renal impairment
     Dosage: UNK
     Route: 033
     Dates: start: 20240130, end: 20240516

REACTIONS (8)
  - Hyponatraemia [Unknown]
  - Fall [Unknown]
  - Haemorrhage [Unknown]
  - Lethargy [Unknown]
  - Fatigue [Unknown]
  - Vomiting [Unknown]
  - Hypervolaemia [Unknown]
  - Infection [Unknown]
